FAERS Safety Report 16885005 (Version 1)
Quarter: 2019Q4

REPORT INFORMATION
  Report Type: Spontaneous
  Country: US (occurrence: US)
  Receive Date: 20191004
  Receipt Date: 20191004
  Transmission Date: 20200122
  Serious: Yes (Other)
  Sender: FDA-Public Use
  Company Number: US-TAKEDA-2019TUS055228

PATIENT
  Age: 69 Year
  Sex: Male

DRUGS (3)
  1. VELCADE [Suspect]
     Active Substance: BORTEZOMIB
     Indication: PLASMA CELL MYELOMA
     Dosage: UNK UNK, 2/WEEK
     Route: 065
     Dates: start: 20180920
  2. SELINEXOR [Concomitant]
     Active Substance: SELINEXOR
     Dosage: UNK
     Route: 065
  3. REVLIMID [Concomitant]
     Active Substance: LENALIDOMIDE
     Dosage: 2.5 MILLIGRAM, QD
     Route: 048
     Dates: start: 201809

REACTIONS (2)
  - Plasma cell myeloma [Unknown]
  - Light chain analysis increased [Unknown]

NARRATIVE: CASE EVENT DATE: 201903
